FAERS Safety Report 5582336-4 (Version None)
Quarter: 2007Q4

REPORT INFORMATION
  Report Type: 
  Country: None (occurrence: None)
  Receive Date: 20071130
  Receipt Date: 20070522
  Transmission Date: 20080405
  Serious: Yes (Hospitalization)
  Sender: FDA-Public Use
  Company Number: WAES 0705USA05303

PATIENT
  Age: 71 Year
  Sex: Female

DRUGS (2)
  1. FOSAMAX [Suspect]
     Indication: OSTEONECROSIS
     Dosage: PO
     Route: 048
  2. PROTONIX [Concomitant]

REACTIONS (1)
  - ADVERSE DRUG REACTION [None]
